FAERS Safety Report 19511273 (Version 1)
Quarter: 2021Q3

REPORT INFORMATION
  Report Type: Spontaneous
  Country: PL (occurrence: PL)
  Receive Date: 20210709
  Receipt Date: 20210709
  Transmission Date: 20211014
  Serious: Yes (Hospitalization)
  Sender: FDA-Public Use
  Company Number: PL-BIOGEN-2021BI01028655

PATIENT
  Age: 56 Year
  Sex: Female
  Weight: 61 kg

DRUGS (4)
  1. SPINRAZA [Suspect]
     Active Substance: NUSINERSEN
     Indication: SPINAL MUSCULAR ATROPHY
     Dosage: MAINTENANCE DOSE. DOSING: IN LINE WITH SMPC, 2019/06.27 ? FIRST DOSE, 2019/12/30 ? FIFTH DOSE
     Route: 037
     Dates: start: 20190627, end: 20191230
  2. BISORATIO [Concomitant]
     Indication: HYPERTENSION
     Dosage: THERAPY ONGOING
     Route: 065
  3. TRITACE [Concomitant]
     Active Substance: RAMIPRIL
     Indication: HYPERTENSION
     Dosage: THERAPY ONGOING
     Route: 048
  4. EUTHYROX [Concomitant]
     Active Substance: LEVOTHYROXINE SODIUM
     Indication: HYPOTHYROIDISM
     Dosage: THERAPY ONGOING, DOSE: 1 TABLET ONCE A DAY
     Route: 048
     Dates: start: 2017

REACTIONS (2)
  - Spinal pain [Unknown]
  - Arachnoiditis [Unknown]

NARRATIVE: CASE EVENT DATE: 20191230
